FAERS Safety Report 12310343 (Version 2)
Quarter: 2016Q2

REPORT INFORMATION
  Report Type: Report from Study
  Country: US (occurrence: US)
  Receive Date: 20160427
  Receipt Date: 20160619
  Transmission Date: 20160815
  Serious: Yes (Death, Hospitalization)
  Sender: FDA-Public Use
  Company Number: US-JNJFOC-20160405584

PATIENT
  Sex: Female
  Weight: 48 kg

DRUGS (10)
  1. SYNTHROID [Concomitant]
     Active Substance: LEVOTHYROXINE SODIUM
     Dosage: 100 MCG, QD
  2. NORVASC [Concomitant]
     Active Substance: AMLODIPINE BESYLATE
  3. ALEVE [Concomitant]
     Active Substance: NAPROXEN SODIUM
     Dosage: 2 TAB, HS, PRN
  4. ZOLOFT [Concomitant]
     Active Substance: SERTRALINE HYDROCHLORIDE
  5. IMBRUVICA [Suspect]
     Active Substance: IBRUTINIB
     Indication: WALDENSTROM^S MACROGLOBULINAEMIA
     Route: 048
     Dates: start: 20150709, end: 20160323
  6. ASPIRIN. [Concomitant]
     Active Substance: ASPIRIN
  7. VITAMIN D [Concomitant]
     Active Substance: CHOLECALCIFEROL
     Dosage: 1000 IU, QD
  8. LISINOPRIL. [Concomitant]
     Active Substance: LISINOPRIL
  9. MULTIVITAMINS [Concomitant]
     Active Substance: VITAMINS
     Dosage: 1 TAB, QD
  10. WELLBUTRIN [Concomitant]
     Active Substance: BUPROPION HYDROCHLORIDE

REACTIONS (10)
  - Cervical spinal stenosis [Not Recovered/Not Resolved]
  - Cystitis klebsiella [Not Recovered/Not Resolved]
  - Hypernatraemia [Recovered/Resolved]
  - Disease progression [Unknown]
  - Radiculopathy [Unknown]
  - Malnutrition [Unknown]
  - Fall [Not Recovered/Not Resolved]
  - Dementia [Fatal]
  - Hypovolaemia [Unknown]
  - Toxic encephalopathy [Unknown]

NARRATIVE: CASE EVENT DATE: 2016
